FAERS Safety Report 20393881 (Version 1)
Quarter: 2022Q1

REPORT INFORMATION
  Report Type: Spontaneous
  Country: US (occurrence: US)
  Receive Date: 20220129
  Receipt Date: 20220129
  Transmission Date: 20220423
  Serious: Yes (Other)
  Sender: FDA-Public Use
  Company Number: US-TEVA-2022-US-2001989

PATIENT
  Sex: Female

DRUGS (1)
  1. AUSTEDO [Suspect]
     Active Substance: DEUTETRABENAZINE
     Indication: Tardive dyskinesia
     Dosage: 5 OR SO YEARS AGO
     Route: 065

REACTIONS (5)
  - Glaucoma [Unknown]
  - Feeling abnormal [Unknown]
  - Insomnia [Unknown]
  - Dizziness [Unknown]
  - Dyskinesia [Unknown]
